FAERS Safety Report 4342659-3 (Version None)
Quarter: 2004Q2

REPORT INFORMATION
  Report Type: 
  Country: None (occurrence: None)
  Receive Date: 20040416
  Receipt Date: 20040402
  Transmission Date: 20050107
  Serious: Yes (Other)
  Sender: FDA-Public Use
  Company Number: CIP04000685

PATIENT
  Age: 78 Year
  Sex: Female

DRUGS (6)
  1. ACTONEL [Suspect]
     Indication: OSTEOPOROSIS
     Dosage: 35 MG ONCE WEEKLY, ORAL
     Route: 048
     Dates: start: 20040229, end: 20040302
  2. GELOCATIL [Concomitant]
  3. PLUSVENT (SALMETEROL XINAFOATE, FLUTICASONE PROPIONATE) [Concomitant]
  4. NORVASC [Concomitant]
  5. NATECAL D [Concomitant]
  6. ALMAX (ALMAGATE) [Concomitant]

REACTIONS (5)
  - ARTHRALGIA [None]
  - MALAISE [None]
  - MYALGIA [None]
  - PYREXIA [None]
  - TREMOR [None]
